FAERS Safety Report 8927708 (Version 1)
Quarter: 2012Q4

REPORT INFORMATION
  Report Type: 
  Country: AU (occurrence: AU)
  Receive Date: 20121127
  Receipt Date: 20121127
  Transmission Date: 20130627
  Serious: Yes (Hospitalization)
  Sender: FDA-Public Use
  Company Number: PHHY2012AU064419

PATIENT
  Age: 84 Year
  Sex: Female

DRUGS (1)
  1. EXJADE [Suspect]
     Indication: IRON OVERLOAD
     Dosage: 1500 mg
     Dates: start: 20120610, end: 201208

REACTIONS (6)
  - Transient ischaemic attack [Recovering/Resolving]
  - Syncope [Recovering/Resolving]
  - Large intestinal haemorrhage [Recovering/Resolving]
  - Constipation [Recovering/Resolving]
  - Asthenia [Recovering/Resolving]
  - Product quality issue [Unknown]
